FAERS Safety Report 8914475 (Version 1)
Quarter: 2012Q4

REPORT INFORMATION
  Report Type: 
  Country: IT (occurrence: IT)
  Receive Date: 20121119
  Receipt Date: 20121119
  Transmission Date: 20130627
  Serious: Yes (Hospitalization)
  Sender: FDA-Public Use
  Company Number: IT-TEVA-369180ISR

PATIENT
  Age: 65 Year
  Sex: Male

DRUGS (8)
  1. CARBOPLATINO [Suspect]
     Indication: PLEURAL MESOTHELIOMA MALIGNANT
     Dosage: 800 Milligram Daily;
     Route: 042
     Dates: start: 20121009, end: 20121030
  2. TORVAST [Concomitant]
     Dosage: 10 Milligram Daily;
     Route: 048
  3. SOLDESAM [Concomitant]
     Indication: PREMEDICATION
     Dosage: 8 mg/2ml
     Route: 030
     Dates: start: 20121029, end: 20121030
  4. ASCRIPTIN [Concomitant]
     Dosage: 1 Dosage forms Daily;
  5. ALIMTA [Concomitant]
     Dosage: 950 Milligram Daily;
     Route: 042
     Dates: start: 20121009, end: 20121030
  6. AMLODIPINA ACTAVIS [Concomitant]
     Dosage: 1 Dosage forms Daily;
  7. CO-EFFERALGAN [Concomitant]
     Dosage: 1 Dosage forms Daily; paracetamol 500 mg + codeine 30 mg
  8. ALLOPURINOLO TEVA [Concomitant]
     Dosage: 1 Dosage forms Daily;

REACTIONS (6)
  - Malaise [Recovering/Resolving]
  - Nausea [Recovering/Resolving]
  - Convulsion [Recovering/Resolving]
  - Tremor [Recovering/Resolving]
  - Hyperhidrosis [Recovering/Resolving]
  - Anal sphincter atony [Recovering/Resolving]
